FAERS Safety Report 15457120 (Version 1)
Quarter: 2018Q4

REPORT INFORMATION
  Report Type: Report from Study
  Country: IN (occurrence: IN)
  Receive Date: 20181002
  Receipt Date: 20181002
  Transmission Date: 20190204
  Serious: Yes (Death)
  Sender: FDA-Public Use
  Company Number: IN-PFIZER INC-2018393919

PATIENT
  Age: 30 Year
  Sex: Female

DRUGS (10)
  1. CEFOPERAZONE SODIUM/SULBACTAM SODIUM [Suspect]
     Active Substance: CEFOPERAZONE SODIUM\SULBACTAM SODIUM
     Indication: SEPTIC SHOCK
  2. COLISTIN [Suspect]
     Active Substance: COLISTIN
     Indication: FEMUR FRACTURE
     Dosage: UNK, 3X/DAY (1 MILLION UNITS)
     Route: 042
  3. MEROPENEM. [Suspect]
     Active Substance: MEROPENEM
     Indication: FEMUR FRACTURE
     Dosage: 1 G, 3X/DAY
     Route: 042
  4. MEROPENEM. [Suspect]
     Active Substance: MEROPENEM
     Indication: SEPTIC SHOCK
  5. LEVOFLOXACIN. [Suspect]
     Active Substance: LEVOFLOXACIN
     Indication: FEMUR FRACTURE
     Dosage: 750 G, 1X/DAY
     Route: 042
  6. PIPERACILLIN/TAZOBACTAM [Suspect]
     Active Substance: PIPERACILLIN SODIUM\TAZOBACTAM SODIUM
     Indication: FEMUR FRACTURE
     Dosage: UNK
  7. LEVOFLOXACIN. [Suspect]
     Active Substance: LEVOFLOXACIN
     Indication: SEPTIC SHOCK
  8. COLISTIN [Suspect]
     Active Substance: COLISTIN
     Indication: SEPTIC SHOCK
  9. CEFOPERAZONE SODIUM/SULBACTAM SODIUM [Suspect]
     Active Substance: CEFOPERAZONE SODIUM\SULBACTAM SODIUM
     Indication: FEMUR FRACTURE
     Dosage: 2 G, 2X/DAY
     Route: 042
  10. PIPERACILLIN/TAZOBACTAM [Suspect]
     Active Substance: PIPERACILLIN SODIUM\TAZOBACTAM SODIUM
     Indication: SEPTIC SHOCK

REACTIONS (1)
  - Pathogen resistance [Fatal]
